FAERS Safety Report 8806554 (Version 1)
Quarter: 2012Q4

REPORT INFORMATION
  Report Type: Report from Study
  Country: CA (occurrence: CA)
  Receive Date: 20120925
  Receipt Date: 20120925
  Transmission Date: 20130627
  Serious: Yes (Other)
  Sender: FDA-Public Use
  Company Number: CA-JNJFOC-20120905776

PATIENT
  Age: 44 Year
  Sex: Male
  Weight: 80 kg

DRUGS (4)
  1. REMICADE [Suspect]
     Indication: ANKYLOSING SPONDYLITIS
     Dosage: 15th dose
     Route: 042
     Dates: start: 20120704
  2. REMICADE [Suspect]
     Indication: ANKYLOSING SPONDYLITIS
     Route: 042
     Dates: start: 20091130
  3. NAPROXEN [Concomitant]
     Route: 065
  4. TYLENOL NO. 3 [Concomitant]
     Route: 065

REACTIONS (1)
  - Food poisoning [Recovered/Resolved]
